FAERS Safety Report 18839158 (Version 2)
Quarter: 2021Q1

REPORT INFORMATION
  Report Type: Spontaneous
  Country: IN (occurrence: IN)
  Receive Date: 20210203
  Receipt Date: 20210216
  Transmission Date: 20210419
  Serious: Yes (Hospitalization, Other)
  Sender: FDA-Public Use
  Company Number: IN-PFIZER INC-2021086697

PATIENT
  Age: 26 Year
  Sex: Male
  Weight: 61 kg

DRUGS (11)
  1. SILDENAFIL CITRATE. [Suspect]
     Active Substance: SILDENAFIL CITRATE
     Indication: SEXUAL DYSFUNCTION
     Dosage: 2000 MG IN 3 TO 4 DIVIDED DOSES
     Route: 048
  2. TRAMADOL. [Interacting]
     Active Substance: TRAMADOL
     Dosage: 25 TO 30 TABLETS OF 50 MG TRAMADOL (1250 ?1500 MG) IN DIVIDED DOSES OVER THE NEXT FEW MONTHS
  3. SILDENAFIL CITRATE. [Interacting]
     Active Substance: SILDENAFIL CITRATE
     Indication: FEELING OF RELAXATION
     Dosage: 1 TO 2 TABLETS OF 50 MG SILDENAFIL INITIALLY
     Route: 048
  4. ALPRAZOLAM. [Interacting]
     Active Substance: ALPRAZOLAM
     Dosage: 40 TO 50 TABLETS OF 0.5 MG ALPRAZOLAM (20?25 MG) IN DIVIDED DOSES OVER THE NEXT FEW MONTHS
  5. ALPRAZOLAM. [Interacting]
     Active Substance: ALPRAZOLAM
     Dosage: 40 TO 50 TABLETS OF 0.5 MG ALPRAZOLAM (20?25 MG) IN DIVIDED DOSES OVER THE NEXT FEW MONTHS
  6. TRAMADOL. [Interacting]
     Active Substance: TRAMADOL
     Dosage: 25 TO 30 TABLETS OF 50 MG TRAMADOL (1250 ?1500 MG) IN DIVIDED DOSES OVER THE NEXT FEW MONTHS
  7. TRAMADOL. [Interacting]
     Active Substance: TRAMADOL
     Dosage: UNK
  8. SILDENAFIL CITRATE. [Interacting]
     Active Substance: SILDENAFIL CITRATE
     Indication: EUPHORIC MOOD
     Dosage: 1 TO 2 TABLETS OF 50 MG SILDENAFIL INITIALLY
     Route: 048
  9. SILDENAFIL CITRATE. [Interacting]
     Active Substance: SILDENAFIL CITRATE
     Dosage: 10 TO 12 TABLETS PER DAY IN 3 TO 4 DIVIDED DOSES
     Route: 048
  10. SILDENAFIL CITRATE. [Interacting]
     Active Substance: SILDENAFIL CITRATE
     Dosage: 10 TO 12 TABLETS PER DAY IN 3 TO 4 DIVIDED DOSES
     Route: 048
  11. ALPRAZOLAM. [Interacting]
     Active Substance: ALPRAZOLAM
     Dosage: UNK

REACTIONS (7)
  - Headache [Unknown]
  - Drug abuse [Unknown]
  - Drug interaction [Unknown]
  - Drug use disorder [Unknown]
  - Euphoric mood [Unknown]
  - Feeling of relaxation [Unknown]
  - Vision blurred [Unknown]
